FAERS Safety Report 16708299 (Version 3)
Quarter: 2019Q3

REPORT INFORMATION
  Report Type: Spontaneous
  Country: US (occurrence: US)
  Receive Date: 20190816
  Receipt Date: 20190925
  Transmission Date: 20191004
  Serious: No
  Sender: FDA-Public Use
  Company Number: US-009507513-1908USA005568

PATIENT
  Age: 63 Year
  Sex: Female

DRUGS (2)
  1. PROVENTIL [Suspect]
     Active Substance: ALBUTEROL
     Indication: BRONCHITIS
     Dosage: 2 PUFFS EVERY 4 TO 6 HOURS
  2. PROVENTIL [Suspect]
     Active Substance: ALBUTEROL
     Indication: HYPERSENSITIVITY
     Dosage: 2 PUFFS EVERY 4 TO 6 HOURS

REACTIONS (7)
  - Product use in unapproved indication [Unknown]
  - Dyspnoea [Not Recovered/Not Resolved]
  - Underdose [Unknown]
  - Incorrect dose administered [Unknown]
  - Product quality issue [Unknown]
  - Poor quality device used [Unknown]
  - No adverse event [Unknown]

NARRATIVE: CASE EVENT DATE: 2019
